FAERS Safety Report 6759707-3 (Version None)
Quarter: 2010Q2

REPORT INFORMATION
  Report Type: 
  Country: None (occurrence: None)
  Receive Date: 20100608
  Receipt Date: 20100525
  Transmission Date: 20101027
  Serious: Yes (Hospitalization, Other)
  Sender: FDA-Public Use
  Company Number: US-BAYER-201024722NA

PATIENT
  Age: 20 Year
  Sex: Female
  Weight: 64 kg

DRUGS (33)
  1. YASMIN [Suspect]
     Indication: ORAL CONTRACEPTION
     Route: 048
     Dates: start: 20051101, end: 20090101
  2. OCELLA [Suspect]
     Indication: ORAL CONTRACEPTION
     Route: 048
     Dates: start: 20080501, end: 20081201
  3. AMOXICILLIN [Concomitant]
     Dates: start: 20051001, end: 20070401
  4. ZITHROMAX [Concomitant]
  5. IBUPROFEN [Concomitant]
  6. TYLENOL [Concomitant]
  7. METRONIDAZOLE [Concomitant]
     Dates: start: 20080801
  8. METRONIDAZOLE [Concomitant]
     Dates: start: 20081201
  9. METRONIDAZOLE [Concomitant]
     Dates: start: 20070601
  10. AZITHROMYCIN [Concomitant]
     Dates: start: 20061001
  11. TRAMADOL [Concomitant]
     Dates: start: 20070501
  12. TRINESSA [Concomitant]
     Dates: start: 20050401
  13. HYDROCODONE [Concomitant]
     Dates: start: 20051001
  14. CEPHALEXIN [Concomitant]
     Dates: start: 20071001
  15. COTRIM [Concomitant]
     Dates: start: 20090401
  16. DIFFERIN [Concomitant]
     Dates: start: 20080701
  17. ALLEGRA [Concomitant]
     Dates: start: 20070401
  18. METROGEL [Concomitant]
     Dates: start: 20080901
  19. DOXYCYCLINE HYCLATE [Concomitant]
     Dates: start: 20070801
  20. ZITHROMAX [Concomitant]
     Dates: start: 20070901
  21. NASONEX [Concomitant]
     Dates: start: 20070401
  22. TRIAMCIN/ORABAS [Concomitant]
     Dates: start: 20070401
  23. LEVAQUIN [Concomitant]
     Dates: start: 20070501
  24. PROPOXYPHENE-N [Concomitant]
     Dates: start: 20070701
  25. TRIAZOLAM [Concomitant]
     Dates: start: 20051001
  26. CLINDESSE [Concomitant]
     Route: 067
     Dates: start: 20070801
  27. ECONAZOLE NITRATE [Concomitant]
     Dates: start: 20070801
  28. SULFAMETHOXAZOLE AND TRIMETHOPRIM [Concomitant]
     Dates: start: 20071201
  29. CLINDAMYCIN [Concomitant]
     Dates: start: 20070401
  30. TRETINOIN [Concomitant]
     Dates: start: 20070401
  31. ORPHENADRINE CITRATE [Concomitant]
     Dates: start: 20070501
  32. PROMETHAZINE [Concomitant]
     Dates: start: 20051001
  33. METHYLPREDNISOLONE [Concomitant]
     Dates: start: 20051001

REACTIONS (2)
  - GALLBLADDER DISORDER [None]
  - PAIN [None]
